FAERS Safety Report 25017133 (Version 1)
Quarter: 2025Q1

REPORT INFORMATION
  Report Type: Spontaneous
  Country: US (occurrence: US)
  Receive Date: 20250227
  Receipt Date: 20250227
  Transmission Date: 20250408
  Serious: Yes (Hospitalization, Other)
  Sender: RANBAXY
  Company Number: US-SUN PHARMACEUTICAL INDUSTRIES LTD-2025R1-494238

PATIENT
  Age: 57 Year
  Sex: Female

DRUGS (3)
  1. BUPIVACAINE [Suspect]
     Active Substance: BUPIVACAINE
     Indication: Plasma cell myeloma
     Route: 037
  2. MORPHINE [Suspect]
     Active Substance: MORPHINE
     Indication: Plasma cell myeloma
     Route: 037
  3. ZICONOTIDE [Suspect]
     Active Substance: ZICONOTIDE
     Indication: Plasma cell myeloma
     Route: 037

REACTIONS (5)
  - Akathisia [Unknown]
  - Confusional state [Unknown]
  - Drug withdrawal syndrome [Unknown]
  - Mental status changes [Unknown]
  - Sedation [Unknown]
